FAERS Safety Report 11042714 (Version 1)
Quarter: 2015Q2

REPORT INFORMATION
  Report Type: Report from Study
  Country: US (occurrence: US)
  Receive Date: 20150416
  Receipt Date: 20150416
  Transmission Date: 20150821
  Serious: No
  Sender: FDA-Public Use
  Company Number: US-CELGENEUS-USA-2015040477

PATIENT
  Age: 33 Year
  Sex: Female
  Weight: 65.83 kg

DRUGS (1)
  1. OTEZLA [Suspect]
     Active Substance: APREMILAST
     Indication: PROSTATIC SPECIFIC ANTIGEN
     Dosage: 60 MILLIGRAM
     Route: 065
     Dates: start: 201409, end: 201412

REACTIONS (2)
  - Headache [Recovered/Resolved]
  - Nausea [Recovered/Resolved]

NARRATIVE: CASE EVENT DATE: 20140902
